FAERS Safety Report 24658859 (Version 2)
Quarter: 2024Q4

REPORT INFORMATION
  Report Type: Spontaneous
  Country: CA (occurrence: CA)
  Receive Date: 20241125
  Receipt Date: 20241212
  Transmission Date: 20250115
  Serious: Yes (Other)
  Sender: SANDOZ
  Company Number: CA-002147023-NVSC2021CA150068

PATIENT
  Age: 52 Year
  Sex: Female

DRUGS (11)
  1. COSENTYX [Suspect]
     Active Substance: SECUKINUMAB
     Indication: Psoriasis
     Dosage: 150 MG, QMO
     Route: 058
  2. COSENTYX [Suspect]
     Active Substance: SECUKINUMAB
     Dosage: 150 MG, QMO
     Route: 058
     Dates: end: 20240926
  3. COSENTYX [Suspect]
     Active Substance: SECUKINUMAB
     Dosage: 150 MG, QMO
     Route: 058
  4. COSENTYX [Suspect]
     Active Substance: SECUKINUMAB
     Indication: Psoriatic arthropathy
     Dosage: 150 MG, QW (WEEKS 0, 1, 2, AND 3)
     Route: 058
     Dates: start: 20210629
  5. COSENTYX [Suspect]
     Active Substance: SECUKINUMAB
     Dosage: 300 MG, QMO
     Route: 058
  6. COSENTYX [Suspect]
     Active Substance: SECUKINUMAB
     Dosage: UNK
     Route: 050
     Dates: start: 20210727
  7. METHOTREXATE [Suspect]
     Active Substance: METHOTREXATE
     Dosage: 1 DF, QW
     Route: 058
     Dates: start: 202102, end: 202107
  8. METHOTREXATE [Suspect]
     Active Substance: METHOTREXATE
     Indication: Product used for unknown indication
     Dosage: UNK
     Route: 048
     Dates: start: 202012, end: 202101
  9. PANTOPRAZOLE [Concomitant]
     Active Substance: PANTOPRAZOLE
     Indication: Acid peptic disease
     Dosage: 1 DF, QD
     Route: 048
  10. BETAMETHASONE\SALICYLIC ACID [Concomitant]
     Active Substance: BETAMETHASONE\SALICYLIC ACID
     Indication: Product used for unknown indication
     Dosage: 1 DF, QD
     Route: 050
     Dates: start: 1991
  11. TESTOSTERONE [Concomitant]
     Active Substance: TESTOSTERONE
     Indication: Menopause
     Dosage: 1 DF, QD
     Route: 048
     Dates: start: 2018

REACTIONS (11)
  - Multiple sclerosis [Unknown]
  - Injection site pain [Recovered/Resolved]
  - Psoriasis [Unknown]
  - Pain of skin [Unknown]
  - Dysstasia [Unknown]
  - Gait disturbance [Unknown]
  - Hypoaesthesia [Unknown]
  - Arthralgia [Unknown]
  - Pruritus [Unknown]
  - Diarrhoea [Unknown]
  - Pain [Unknown]

NARRATIVE: CASE EVENT DATE: 20210629
